FAERS Safety Report 8830808 (Version 1)
Quarter: 2012Q4

REPORT INFORMATION
  Report Type: 
  Country: JP (occurrence: JP)
  Receive Date: 20121008
  Receipt Date: 20121008
  Transmission Date: 20130627
  Serious: Yes (Other)
  Sender: FDA-Public Use
  Company Number: JP-PFIZER INC-2012156404

PATIENT
  Age: 48 Year
  Sex: Male

DRUGS (3)
  1. VFEND [Suspect]
     Dosage: UNK
     Route: 048
     Dates: start: 20120516, end: 20120627
  2. NEORAL [Suspect]
     Dosage: UNK
     Dates: start: 20120615, end: 20120622
  3. ITRIZOLE [Suspect]
     Dosage: UNK
     Route: 048
     Dates: start: 20120511, end: 20120629

REACTIONS (3)
  - Scleroderma [Unknown]
  - Interstitial lung disease [Unknown]
  - Platelet count decreased [Not Recovered/Not Resolved]
